FAERS Safety Report 12626204 (Version 2)
Quarter: 2016Q3

REPORT INFORMATION
  Report Type: Report from Study
  Country: US (occurrence: US)
  Receive Date: 20160805
  Receipt Date: 20160824
  Transmission Date: 20161109
  Serious: Yes (Hospitalization)
  Sender: FDA-Public Use
  Company Number: US-ACTELION-A-NJ2015-121933

PATIENT
  Age: 64 Year
  Sex: Female

DRUGS (8)
  1. VELETRI [Suspect]
     Active Substance: EPOPROSTENOL
     Indication: PULMONARY ARTERIAL HYPERTENSION
     Dosage: 37 NG/KG, PER MIN
     Route: 042
     Dates: start: 20131105
  2. VELETRI [Suspect]
     Active Substance: EPOPROSTENOL
     Dosage: 15 NG/KG, PER MIN
     Route: 042
     Dates: start: 20131105, end: 201607
  3. SILDENAFIL. [Concomitant]
     Active Substance: SILDENAFIL
  4. TYVASO [Concomitant]
     Active Substance: TREPROSTINIL
  5. ELIQUIS [Concomitant]
     Active Substance: APIXABAN
  6. COUMADIN [Concomitant]
     Active Substance: WARFARIN SODIUM
  7. LETAIRIS [Concomitant]
     Active Substance: AMBRISENTAN
  8. ADCIRCA [Concomitant]
     Active Substance: TADALAFIL

REACTIONS (26)
  - Atrial fibrillation [Unknown]
  - Weight increased [Unknown]
  - Muscular weakness [Unknown]
  - Flushing [Not Recovered/Not Resolved]
  - Atrial flutter [Unknown]
  - Pain in jaw [Unknown]
  - Rash macular [Unknown]
  - Rash [Unknown]
  - Restlessness [Unknown]
  - Skin disorder [Unknown]
  - Urticaria [Unknown]
  - Skin sensitisation [Unknown]
  - Heart rate increased [Unknown]
  - Stress [Unknown]
  - Hypotension [Unknown]
  - Diarrhoea [Unknown]
  - Oedema peripheral [Unknown]
  - Drug dose omission [Unknown]
  - Insomnia [Unknown]
  - Feeling hot [Unknown]
  - Dyspnoea [Unknown]
  - Cardiac ablation [Unknown]
  - Swelling [Unknown]
  - Dermatitis contact [Unknown]
  - Eye pain [Unknown]
  - Fatigue [Unknown]
